FAERS Safety Report 8035491-0 (Version None)
Quarter: 2012Q1

REPORT INFORMATION
  Report Type: 
  Country: None (occurrence: None)
  Receive Date: 20120110
  Receipt Date: 20120110
  Transmission Date: 20120608
  Serious: Yes (Hospitalization)
  Sender: FDA-Public Use
  Company Number: None

PATIENT
  Age: 70 Year
  Sex: Male
  Weight: 74.2 kg

DRUGS (2)
  1. NAPROXEN [Suspect]
     Indication: PAIN
     Dosage: 1 TAB BID PO
     Route: 048
     Dates: start: 20091217, end: 20111021
  2. IBUPROFEN [Suspect]
     Dosage: 1-2 TAB PRN PO
     Route: 048
     Dates: end: 20111021

REACTIONS (1)
  - GASTROINTESTINAL HAEMORRHAGE [None]
